FAERS Safety Report 4290354-1 (Version None)
Quarter: 2004Q1

REPORT INFORMATION
  Report Type: 
  Country: None (occurrence: None)
  Receive Date: 20040206
  Receipt Date: 20040206
  Transmission Date: 20041129
  Serious: Yes (Life-Threatening)
  Sender: FDA-Public Use
  Company Number: None

PATIENT
  Age: 49 Year
  Sex: Female
  Weight: 86.1834 kg

DRUGS (4)
  1. ZOLOFT [Suspect]
     Indication: DEPRESSION
     Dates: start: 19970301, end: 19970601
  2. ZOLOFT [Suspect]
     Indication: MENOPAUSE
     Dates: start: 19970301, end: 19970601
  3. EFFEXOR [Suspect]
     Indication: DEPRESSION
     Dates: start: 19970601, end: 19970930
  4. EFFEXOR [Suspect]
     Indication: MENOPAUSE
     Dates: start: 19970601, end: 19970930

REACTIONS (3)
  - CRYING [None]
  - DEPRESSION [None]
  - SUICIDAL IDEATION [None]
